FAERS Safety Report 7768798 (Version 5)
Quarter: 2013Q2

REPORT INFORMATION
  Report Type: Spontaneous
  Country: US (occurrence: None)
  Receive Date: 20101228
  Receipt Date: 20120621
  Transmission Date: 20140414
  Serious: Yes (Hospitalization)
  Sender: FDA-Public Use
  Company Number: 023756

PATIENT
  Sex: Female
  Weight: 59 kg

DRUGS (7)
  1. CIMZIA [Suspect]
     Indication: CROHN^S DISEASE
     Dosage: (400 MG 1X/MONTH SUBCUTANEOUS)
     Route: 058
     Dates: start: 20101028
  2. CIPRO [Concomitant]
  3. FLAGYL [Concomitant]
  4. LEXAPRO [Concomitant]
  5. HYDROMORPHONE HYDROCHLORIDE [Concomitant]
  6. MORPHINE SULFATE [Concomitant]
  7. ZOFRAN [Concomitant]

REACTIONS (4)
  - Crohn^s disease [None]
  - CONDITION AGGRAVATED [None]
  - MALNUTRITION [None]
  - Alopecia [None]
